FAERS Safety Report 8319391-4 (Version None)
Quarter: 2012Q2

REPORT INFORMATION
  Report Type: 
  Country: None (occurrence: None)
  Receive Date: 20120427
  Receipt Date: 20120423
  Transmission Date: 20120825
  Serious: Yes (Death)
  Sender: FDA-Public Use
  Company Number: PHHY2012US035446

PATIENT
  Age: 56 Year
  Sex: Male

DRUGS (6)
  1. HYDROCHLOROTHIAZIDE W/OLMESARTAN MEDOXOMIL [Suspect]
     Dosage: UNK UKN, UNK
  2. ALPRAZOLAM [Suspect]
     Dosage: UNK UKN, UNK
  3. OLMESARTAN MEDOXOMIL [Suspect]
     Dosage: UNK UKN, UNK
  4. VERAPAMIL [Suspect]
     Dosage: UNK UKN, UNK
  5. ESZOPICLONE [Suspect]
     Dosage: UNK UKN, UNK
  6. CLONIDINE [Suspect]
     Dosage: UNK UKN, UNK

REACTIONS (1)
  - COMPLETED SUICIDE [None]
